FAERS Safety Report 22222673 (Version 1)
Quarter: 2023Q2

REPORT INFORMATION
  Report Type: Spontaneous
  Country: FR (occurrence: FR)
  Receive Date: 20230418
  Receipt Date: 20230418
  Transmission Date: 20230721
  Serious: Yes (Hospitalization, Other)
  Sender: FDA-Public Use
  Company Number: None

PATIENT
  Age: 45 Year
  Sex: Male
  Weight: 81 kg

DRUGS (4)
  1. VIDAZA [Suspect]
     Active Substance: AZACITIDINE
     Indication: Chronic myelomonocytic leukaemia
     Route: 058
     Dates: start: 20200316
  2. BACTRIM [Suspect]
     Active Substance: SULFAMETHOXAZOLE\TRIMETHOPRIM
     Indication: Prophylaxis
     Route: 048
  3. KINERET [Concomitant]
     Active Substance: ANAKINRA
     Indication: Chronic myelomonocytic leukaemia
     Route: 058
     Dates: start: 20230121, end: 20230303
  4. VALACYCLOVIR HYDROCHLORIDE [Concomitant]
     Active Substance: VALACYCLOVIR HYDROCHLORIDE
     Indication: Product used for unknown indication

REACTIONS (1)
  - Hypothyroidism [Not Recovered/Not Resolved]
